FAERS Safety Report 15294909 (Version 1)
Quarter: 2018Q3

REPORT INFORMATION
  Report Type: Spontaneous
  Country: US (occurrence: US)
  Receive Date: 20180820
  Receipt Date: 20180820
  Transmission Date: 20181010
  Serious: Yes (Hospitalization, Other)
  Sender: FDA-Public Use
  Company Number: US-BAYER-2018-150973

PATIENT
  Age: 76 Year
  Sex: Male

DRUGS (4)
  1. WARFARIN [Concomitant]
     Active Substance: WARFARIN
  2. CLOPIDOGREL [Concomitant]
     Active Substance: CLOPIDOGREL BISULFATE
  3. ACETYLSALICYLIC ACID({=100 MG) [Suspect]
     Active Substance: ASPIRIN
  4. DIPYRIDAMOLE. [Concomitant]
     Active Substance: DIPYRIDAMOLE

REACTIONS (3)
  - Labelled drug-drug interaction medication error [None]
  - Vomiting [None]
  - Oesophageal intramural haematoma [Recovered/Resolved]
